FAERS Safety Report 17901004 (Version 1)
Quarter: 2020Q2

REPORT INFORMATION
  Report Type: Spontaneous
  Country: US (occurrence: US)
  Receive Date: 20200616
  Receipt Date: 20200616
  Transmission Date: 20200714
  Serious: No
  Sender: FDA-Public Use
  Company Number: None

PATIENT
  Age: 49 Year
  Sex: Female
  Weight: 127.1 kg

DRUGS (1)
  1. RITUXAN [Suspect]
     Active Substance: RITUXIMAB
     Indication: RHEUMATOID ARTHRITIS
     Dosage: ?          OTHER FREQUENCY:EVERY 2 WEEKS X2;?
     Route: 041
     Dates: start: 20180928

REACTIONS (4)
  - Pruritus [None]
  - Urticaria [None]
  - Paraesthesia oral [None]
  - Infusion related reaction [None]

NARRATIVE: CASE EVENT DATE: 20200601
